FAERS Safety Report 21761597 (Version 1)
Quarter: 2022Q4

REPORT INFORMATION
  Report Type: Spontaneous
  Country: US (occurrence: US)
  Receive Date: 20221221
  Receipt Date: 20221221
  Transmission Date: 20230113
  Serious: No
  Sender: FDA-Public Use
  Company Number: US-PFIZER INC-202201379487

PATIENT
  Age: 55 Year
  Sex: Female
  Weight: 106.12 kg

DRUGS (4)
  1. AZULFIDINE [Suspect]
     Active Substance: SULFASALAZINE
     Indication: Rheumatoid arthritis
     Dosage: 1000 MG, DAILY
     Route: 048
     Dates: start: 201909, end: 202007
  2. AZULFIDINE [Suspect]
     Active Substance: SULFASALAZINE
     Dosage: 2000 MG, DAILY
     Route: 048
     Dates: start: 202007, end: 202007
  3. HUMIRA [Concomitant]
     Active Substance: ADALIMUMAB
     Indication: Rheumatoid arthritis
     Dosage: UNK
     Route: 058
     Dates: start: 201905, end: 20191022
  4. SIMPONI [Concomitant]
     Active Substance: GOLIMUMAB
     Indication: Rheumatoid arthritis
     Dosage: UNK
     Route: 042
     Dates: start: 20191022, end: 202002

REACTIONS (1)
  - Drug ineffective [Unknown]

NARRATIVE: CASE EVENT DATE: 20200701
